FAERS Safety Report 9998099 (Version 1)
Quarter: 2014Q1

REPORT INFORMATION
  Report Type: Spontaneous
  Country: US (occurrence: US)
  Receive Date: 20140311
  Receipt Date: 20140311
  Transmission Date: 20141002
  Serious: No
  Sender: FDA-Public Use
  Company Number: US-GILEAD-2014-0096253

PATIENT
  Age: 89 Year
  Sex: Female

DRUGS (3)
  1. LETAIRIS [Suspect]
     Indication: PRODUCT USED FOR UNKNOWN INDICATION
     Dosage: 5 MG, UNK
     Route: 065
     Dates: start: 20110121
  2. CORTISONE [Suspect]
     Dosage: UNK
     Route: 065
     Dates: start: 20140301, end: 20140301
  3. COUMADIN                           /00014802/ [Concomitant]
     Dosage: UNK
     Route: 065
     Dates: end: 201403

REACTIONS (2)
  - Contusion [Unknown]
  - Fluid retention [Unknown]
